FAERS Safety Report 23873799 (Version 2)
Quarter: 2024Q3

REPORT INFORMATION
  Report Type: Spontaneous
  Country: US (occurrence: US)
  Receive Date: 20240520
  Receipt Date: 20240703
  Transmission Date: 20241016
  Serious: No
  Sender: NOVARTIS
  Company Number: US-002147023-NVSC2024US105785

PATIENT
  Sex: Female

DRUGS (1)
  1. LEQVIO [Suspect]
     Active Substance: INCLISIRAN SODIUM
     Indication: Product used for unknown indication
     Dosage: 284 MG EVERY 3 MONTHS
     Route: 065
     Dates: start: 20240509

REACTIONS (3)
  - Arthralgia [Unknown]
  - Headache [Unknown]
  - Muscular weakness [Unknown]
